FAERS Safety Report 8221576 (Version 2)
Quarter: 2013Q1

REPORT INFORMATION
  Report Type: Spontaneous
  Country: CA (occurrence: CA)
  Receive Date: 20111102
  Receipt Date: 20130320
  Transmission Date: 20140127
  Serious: Yes (Other)
  Sender: FDA-Public Use
  Company Number: CA-JNJFOC-20111010736

PATIENT
  Age: 23 Year
  Sex: Female
  Weight: 58.97 kg

DRUGS (16)
  1. REMICADE [Suspect]
     Indication: COLITIS ULCERATIVE
     Dosage: 12TH INFUSION
     Route: 042
     Dates: end: 20120725
  2. REMICADE [Suspect]
     Indication: COLITIS ULCERATIVE
     Dosage: 12TH INFUSION
     Route: 042
  3. REMICADE [Suspect]
     Indication: COLITIS ULCERATIVE
     Dosage: APPROXIMATELY RECEIVED 13 INFUSION
     Route: 042
     Dates: start: 20111019
  4. REMICADE [Suspect]
     Indication: COLITIS ULCERATIVE
     Route: 042
     Dates: start: 20101129
  5. HUMIRA [Concomitant]
  6. EFFEXOR [Concomitant]
     Route: 065
  7. CALCIUM [Concomitant]
     Route: 065
  8. VITAMIN D [Concomitant]
     Route: 065
  9. PANTOLOC [Concomitant]
     Route: 065
  10. CORTISONE [Concomitant]
  11. OTHER THERAPEUTIC MEDICATION [Concomitant]
  12. ACETAMINOPHEN [Concomitant]
     Indication: PREMEDICATION
     Route: 048
     Dates: start: 20111019
  13. DESLORATADINE [Concomitant]
     Indication: PREMEDICATION
     Route: 048
     Dates: start: 20111019
  14. LYRICA [Concomitant]
     Route: 065
  15. PREDNISONE [Concomitant]
     Route: 065
  16. BENADRYL [Concomitant]
     Indication: PREMEDICATION
     Route: 048

REACTIONS (4)
  - Tachycardia [Recovered/Resolved]
  - Infusion related reaction [Recovered/Resolved]
  - Dyspnoea [Recovered/Resolved]
  - Pruritus [Recovered/Resolved]
